FAERS Safety Report 7926621-7 (Version None)
Quarter: 2011Q4

REPORT INFORMATION
  Report Type: 
  Country: None (occurrence: None)
  Receive Date: 20111118
  Receipt Date: 20111109
  Transmission Date: 20120403
  Serious: No
  Sender: FDA-Public Use
  Company Number: US-BIOGENIDEC-2011BI042957

PATIENT
  Age: 60 Year
  Sex: Female

DRUGS (5)
  1. BENADRYL [Concomitant]
     Indication: PRODUCT USED FOR UNKNOWN INDICATION
  2. VALIUM [Concomitant]
     Indication: PRODUCT USED FOR UNKNOWN INDICATION
  3. VICODIN [Concomitant]
     Indication: PRODUCT USED FOR UNKNOWN INDICATION
  4. AVONEX [Suspect]
     Indication: MULTIPLE SCLEROSIS
     Route: 030
     Dates: start: 20110701
  5. AVONEX [Suspect]
     Route: 030
     Dates: start: 20070522, end: 20080522

REACTIONS (3)
  - INFLUENZA LIKE ILLNESS [None]
  - HEAD DISCOMFORT [None]
  - DYSTONIA [None]
